FAERS Safety Report 24227132 (Version 2)
Quarter: 2024Q3

REPORT INFORMATION
  Report Type: Spontaneous
  Country: CN (occurrence: CN)
  Receive Date: 20240820
  Receipt Date: 20240830
  Transmission Date: 20241016
  Serious: Yes (Other)
  Sender: ROCHE
  Company Number: CN-BoehringerIngelheim-2024-BI-044959

PATIENT
  Age: 58 Year
  Sex: Male
  Weight: 61.8 kg

DRUGS (1)
  1. ALTEPLASE [Suspect]
     Active Substance: ALTEPLASE
     Indication: Thrombolysis
     Route: 065
     Dates: start: 20240723, end: 20240723

REACTIONS (10)
  - Coma [Unknown]
  - Brain herniation [Unknown]
  - Haemorrhage intracranial [Unknown]
  - Tongue haemorrhage [Not Recovered/Not Resolved]
  - Gingival bleeding [Unknown]
  - Gastrointestinal haemorrhage [Unknown]
  - Anaemia [Unknown]
  - Hyperlipidaemia [Unknown]
  - Hypoproteinaemia [Unknown]
  - Product quality issue [Unknown]

NARRATIVE: CASE EVENT DATE: 20240723
